FAERS Safety Report 9979522 (Version 2)
Quarter: 2014Q1

REPORT INFORMATION
  Report Type: Report from Study
  Country: US (occurrence: US)
  Receive Date: 20140306
  Receipt Date: 20140306
  Transmission Date: 20141002
  Serious: No
  Sender: FDA-Public Use
  Company Number: US-ABBVIE-13P-163-1160050-00

PATIENT
  Age: 31 Year
  Sex: Female

DRUGS (5)
  1. HUMIRA [Suspect]
     Indication: RHEUMATOID ARTHRITIS
     Dates: start: 20131019
  2. METHOTREXATE [Concomitant]
     Indication: RHEUMATOID ARTHRITIS
  3. PREDNISONE [Concomitant]
     Indication: PRODUCT USED FOR UNKNOWN INDICATION
  4. ATENOLOL [Concomitant]
     Indication: HYPERTENSION
  5. BUSPAR [Concomitant]
     Indication: ANXIETY

REACTIONS (8)
  - Malaise [Unknown]
  - Chest pain [Recovered/Resolved]
  - Injection site pain [Recovered/Resolved]
  - Bronchitis [Recovering/Resolving]
  - Ear infection [Unknown]
  - Paraesthesia [Unknown]
  - Chest pain [Unknown]
  - Anaemia [Unknown]
